FAERS Safety Report 5140870-5 (Version None)
Quarter: 2006Q4

REPORT INFORMATION
  Report Type: 
  Country: None (occurrence: None)
  Receive Date: 20061026
  Receipt Date: 20061016
  Transmission Date: 20070319
  Serious: Yes (Congenital Anomaly)
  Sender: FDA-Public Use
  Company Number: 2006126439

PATIENT

DRUGS (3)
  1. ATORVASTATIN CALCIUM [Suspect]
     Indication: TYPE IIA HYPERLIPIDAEMIA
     Dosage: 40 MG PLACENTAL
     Route: 064
  2. GOSERELIN [Concomitant]
  3. ANTIBIOTICS [Concomitant]

REACTIONS (6)
  - ABORTION INDUCED [None]
  - CONGENITAL ANOMALY [None]
  - DRUG EXPOSURE DURING PREGNANCY [None]
  - FINGER DEFORMITY [None]
  - HYDROCEPHALUS [None]
  - X-LINKED CHROMOSOMAL DISORDER [None]
